FAERS Safety Report 7434845-0 (Version None)
Quarter: 2011Q2

REPORT INFORMATION
  Report Type: 
  Country: None (occurrence: None)
  Receive Date: 20110418
  Receipt Date: 20110405
  Transmission Date: 20111010
  Serious: Yes (Death)
  Sender: FDA-Public Use
  Company Number: 2011030077

PATIENT
  Age: 81 Year
  Sex: Female
  Weight: 104 kg

DRUGS (13)
  1. CONVERSUM N COMBI (INDAPAMIDE, PERINDOPRIL ARGININE) [Concomitant]
  2. ASPEGIC (ACETYLSALICYLATE LYSINE) [Concomitant]
  3. TORSEMIDE [Suspect]
     Dosage: 60 MG (20 MG,3 IN 1 D),INTRAVENOUS BOLUS
     Route: 040
     Dates: start: 20110207, end: 20110211
  4. OFLOXACIN [Suspect]
     Indication: ERYSIPELAS
     Dosage: 200 MG (200 MG,1 IN 1 D),ORAL
     Route: 048
     Dates: end: 20110206
  5. BISOPROLOL FUMARATE [Concomitant]
  6. FLUIMUCIL (ACETYLCYSTEINE) [Concomitant]
  7. BELOC (ATENOLOL) [Concomitant]
  8. ACTRAPID (NSULIN HUMAN) [Concomitant]
  9. PANTOZOL (PANTOPRAZOLE SODIUM SESQUIHYDRATE) [Concomitant]
  10. PERFALGAN (PARACETAMOL) [Concomitant]
  11. PLAVIX [Suspect]
     Indication: ACUTE MYOCARDIAL INFARCTION
     Dosage: 75 MG (75 MG,1 IN 1 D),ORAL
     Route: 048
     Dates: start: 20110207, end: 20110211
  12. HUMALOG [Concomitant]
  13. XENETIX (IOBITRIDOL) [Suspect]
     Indication: DIAGNOSTIC PROCEDURE
     Dosage: 300 MG (300 MG,1 IN 1 D),INTRAVENOUS BOLUS
     Route: 040
     Dates: start: 20110208, end: 20110208

REACTIONS (15)
  - MYOCARDIAL INFARCTION [None]
  - VENTRICULAR HYPERTROPHY [None]
  - TUBULOINTERSTITIAL NEPHRITIS [None]
  - DEHYDRATION [None]
  - PLEURAL EFFUSION [None]
  - FAT EMBOLISM [None]
  - RENAL ATROPHY [None]
  - PULMONARY CONGESTION [None]
  - RENAL INFARCT [None]
  - GENERAL PHYSICAL HEALTH DETERIORATION [None]
  - CARDIAC FAILURE [None]
  - RENAL FAILURE ACUTE [None]
  - ABDOMINAL PAIN [None]
  - ARRHYTHMIA [None]
  - HAEMORRHAGE [None]
